FAERS Safety Report 21745710 (Version 1)
Quarter: 2022Q4

REPORT INFORMATION
  Report Type: Spontaneous
  Country: CN (occurrence: CN)
  Receive Date: 20221219
  Receipt Date: 20221219
  Transmission Date: 20230112
  Serious: Yes (Hospitalization, Other)
  Sender: FDA-Public Use
  Company Number: CN-Accord-292232

PATIENT
  Age: 9 Month
  Sex: Female

DRUGS (1)
  1. LEVOTHYROXINE [Suspect]
     Active Substance: LEVOTHYROXINE
     Indication: Congenital hypothyroidism
     Dosage: STARTED AT REDUCED DOSE AND AFTER SURGERY DOSE WAS INCREASED.

REACTIONS (1)
  - Neoplasm progression [Unknown]
